FAERS Safety Report 6847480-X (Version None)
Quarter: 2010Q3

REPORT INFORMATION
  Report Type: 
  Country: None (occurrence: None)
  Receive Date: 20100716
  Receipt Date: 20100708
  Transmission Date: 20110219
  Serious: Yes (Hospitalization, Other)
  Sender: FDA-Public Use
  Company Number: DE-PFIZER INC-2010069005

PATIENT
  Age: 73 Year
  Sex: Male
  Weight: 75 kg

DRUGS (4)
  1. SORTIS [Suspect]
     Indication: BLOOD CHOLESTEROL ABNORMAL
     Dosage: 60 - 80 MG, 1X/DAY IN THE EVENING
     Route: 048
     Dates: start: 19890101
  2. SORTIS [Suspect]
     Indication: CORONARY ARTERY DISEASE
  3. MARCUMAR [Concomitant]
     Dosage: UNK
  4. EZETROL [Concomitant]
     Dosage: UNK

REACTIONS (5)
  - BLOOD CREATINE PHOSPHOKINASE INCREASED [None]
  - DEPRESSION [None]
  - GAIT DISTURBANCE [None]
  - MUSCULAR WEAKNESS [None]
  - MYALGIA [None]
